FAERS Safety Report 20163663 (Version 2)
Quarter: 2022Q4

REPORT INFORMATION
  Report Type: Other
  Country: US (occurrence: None)
  Receive Date: 20211209
  Receipt Date: 20221109
  Transmission Date: 20230112
  Serious: Yes (Other)
  Sender: FDA-Public Use
  Company Number: US-ROCHE-2935206

PATIENT
  Age: 31 Year
  Sex: Female
  Weight: 72.640 kg

DRUGS (9)
  1. OCREVUS [Suspect]
     Active Substance: OCRELIZUMAB
     Indication: Relapsing-remitting multiple sclerosis
     Dosage: 24/NOV/2020 - INFUSION FOR 5.5 HOURS
     Route: 042
     Dates: start: 20201124, end: 20201124
  2. OCREVUS [Suspect]
     Active Substance: OCRELIZUMAB
     Dosage: RESTARTED
     Route: 042
     Dates: start: 20211115
  3. OCREVUS [Suspect]
     Active Substance: OCRELIZUMAB
     Route: 042
  4. OCREVUS [Suspect]
     Active Substance: OCRELIZUMAB
     Route: 042
     Dates: start: 20201120
  5. BENADRYL [Suspect]
     Active Substance: DIPHENHYDRAMINE HYDROCHLORIDE
     Indication: Premedication
     Route: 042
     Dates: start: 20201120, end: 20201120
  6. BENADRYL [Suspect]
     Active Substance: DIPHENHYDRAMINE HYDROCHLORIDE
     Route: 042
     Dates: start: 20211115
  7. ALBUTEROL [Concomitant]
     Active Substance: ALBUTEROL
  8. COVID-19 VACCINE [Concomitant]
  9. BENADRYL [Concomitant]
     Active Substance: DIPHENHYDRAMINE HYDROCHLORIDE
     Indication: Premedication
     Route: 048
     Dates: start: 20211115

REACTIONS (6)
  - Maternal exposure during pregnancy [Unknown]
  - COVID-19 [Unknown]
  - Blood pressure decreased [Recovered/Resolved]
  - Loss of consciousness [Recovered/Resolved]
  - Vomiting [Recovered/Resolved]
  - Headache [Recovered/Resolved]

NARRATIVE: CASE EVENT DATE: 20201120
